FAERS Safety Report 5607555-X (Version None)
Quarter: 2008Q1

REPORT INFORMATION
  Report Type: 
  Country: None (occurrence: None)
  Receive Date: 20080130
  Receipt Date: 20080123
  Transmission Date: 20080703
  Serious: Yes (Hospitalization)
  Sender: FDA-Public Use
  Company Number: PHMT2008CA00479

PATIENT

DRUGS (1)
  1. AREDIA [Suspect]

REACTIONS (2)
  - CELLULITIS [None]
  - EXTRAVASATION [None]
